FAERS Safety Report 7530844-9 (Version None)
Quarter: 2011Q2

REPORT INFORMATION
  Report Type: 
  Country: None (occurrence: None)
  Receive Date: 20110607
  Receipt Date: 20110525
  Transmission Date: 20111010
  Serious: Yes (Hospitalization)
  Sender: FDA-Public Use
  Company Number: IT-MYLANLABS-2011S1011234

PATIENT
  Age: 46 Year
  Sex: Female

DRUGS (7)
  1. PLECTRANTHUS BARBATUS [Suspect]
     Indication: WEIGHT DECREASED
     Route: 065
  2. SIBUTRAMINE HYDROCHLORIDE MONOHYDRATE [Concomitant]
     Route: 065
  3. HOODIA GORDONII EXTRACT [Concomitant]
     Route: 065
  4. SERTRALINE HYDROCHLORIDE [Concomitant]
     Route: 065
  5. EPHEDRA [Concomitant]
     Route: 065
  6. BUSPIRONE HCL [Concomitant]
     Route: 065
  7. FLUOXETINE HCL [Suspect]
     Route: 065

REACTIONS (1)
  - ANTICHOLINERGIC SYNDROME [None]
